FAERS Safety Report 12601823 (Version 2)
Quarter: 2016Q3

REPORT INFORMATION
  Report Type: Spontaneous
  Country: TR (occurrence: TR)
  Receive Date: 20160728
  Receipt Date: 20160824
  Transmission Date: 20161109
  Serious: Yes (Death, Other)
  Sender: FDA-Public Use
  Company Number: TR-JNJFOC-20160715275

PATIENT
  Age: 46 Year
  Sex: Female

DRUGS (4)
  1. CISPLATINUM [Suspect]
     Active Substance: CISPLATIN
     Indication: UNDIFFERENTIATED SARCOMA
     Dosage: FIRST CYCLE
     Route: 065
     Dates: start: 20130401
  2. DOXORUBICIN [Suspect]
     Active Substance: DOXORUBICIN
     Indication: RHABDOMYOSARCOMA
     Dosage: FIRST CYCLE
     Route: 042
     Dates: start: 20130401
  3. DOXORUBICIN [Suspect]
     Active Substance: DOXORUBICIN
     Indication: UNDIFFERENTIATED SARCOMA
     Dosage: FIRST CYCLE
     Route: 042
     Dates: start: 20130401
  4. CISPLATINUM [Suspect]
     Active Substance: CISPLATIN
     Indication: RHABDOMYOSARCOMA
     Dosage: FIRST CYCLE
     Route: 065
     Dates: start: 20130401

REACTIONS (4)
  - Product use issue [Unknown]
  - Febrile neutropenia [Unknown]
  - Off label use [Unknown]
  - Hypotension [Fatal]
